FAERS Safety Report 6403183-7 (Version None)
Quarter: 2009Q4

REPORT INFORMATION
  Report Type: 
  Country: None (occurrence: None)
  Receive Date: 20091016
  Receipt Date: 20091005
  Transmission Date: 20100525
  Serious: Yes (Hospitalization)
  Sender: FDA-Public Use
  Company Number: NL-AMGEN-US368303

PATIENT
  Age: 70 Year
  Sex: Male
  Weight: 85 kg

DRUGS (5)
  1. ENBREL [Suspect]
     Indication: PSORIATIC ARTHROPATHY
     Route: 058
     Dates: start: 20090827, end: 20090906
  2. PANTOZOL [Concomitant]
     Route: 048
     Dates: start: 20080101, end: 20090101
  3. FOLIC ACID [Concomitant]
     Route: 048
     Dates: start: 20080101, end: 20090906
  4. METHOTREXATE [Concomitant]
     Route: 065
     Dates: start: 20080101, end: 20090906
  5. DICLOFENAC SODIUM [Concomitant]
     Route: 048
     Dates: start: 20080101, end: 20090906

REACTIONS (2)
  - IMMUNODEFICIENCY [None]
  - INFECTION SUSCEPTIBILITY INCREASED [None]
